FAERS Safety Report 6978133-5 (Version None)
Quarter: 2010Q3

REPORT INFORMATION
  Report Type: 
  Country: None (occurrence: None)
  Receive Date: 20100913
  Receipt Date: 20100827
  Transmission Date: 20110219
  Serious: Yes (Hospitalization)
  Sender: FDA-Public Use
  Company Number: US-BAYER-201024614NA

PATIENT
  Age: 21 Year
  Sex: Female

DRUGS (7)
  1. YAZ [Suspect]
     Indication: ACNE
     Route: 048
     Dates: start: 20060501, end: 20090901
  2. EPHEDRA [Concomitant]
  3. RETIN-A MICRO [Concomitant]
     Dates: start: 20070901
  4. BENZACLIN [Concomitant]
     Dates: start: 20070901
  5. MICROGESTIN FE [Concomitant]
     Dosage: 1.5/30MG
     Dates: start: 20090501, end: 20100101
  6. JUNEL FE [Concomitant]
     Dosage: 1.5/30MG
     Dates: start: 20100301
  7. LOESTRIN 1.5/30 [Concomitant]
     Dosage: 1.5MG/30MCG

REACTIONS (2)
  - CHOLECYSTECTOMY [None]
  - LOSS OF LIBIDO [None]
